FAERS Safety Report 11611466 (Version 1)
Quarter: 2015Q4

REPORT INFORMATION
  Report Type: Spontaneous
  Country: US (occurrence: US)
  Receive Date: 20151008
  Receipt Date: 20151008
  Transmission Date: 20160304
  Serious: Yes (Other)
  Sender: FDA-Public Use
  Company Number: US-BIOGENIDEC-2015BI135739

PATIENT
  Sex: Female
  Weight: 43 kg

DRUGS (19)
  1. REBIF [Concomitant]
     Active Substance: INTERFERON BETA-1A
  2. AMBIEN CR [Concomitant]
     Active Substance: ZOLPIDEM TARTRATE
  3. METOPROLOL TARTRATE. [Concomitant]
     Active Substance: METOPROLOL TARTRATE
  4. OXYCODONE [Concomitant]
     Active Substance: OXYCODONE
  5. VITAMIN D [Concomitant]
     Active Substance: CHOLECALCIFEROL
  6. LACTULOSE. [Concomitant]
     Active Substance: LACTULOSE
  7. HYDROCHLOROTHIAZIDE. [Concomitant]
     Active Substance: HYDROCHLOROTHIAZIDE
  8. MIRALAX [Concomitant]
     Active Substance: POLYETHYLENE GLYCOL 3350
  9. XANAX [Concomitant]
     Active Substance: ALPRAZOLAM
  10. TECFIDERA [Suspect]
     Active Substance: DIMETHYL FUMARATE
     Indication: MULTIPLE SCLEROSIS
     Dates: start: 2013
  11. AMPYRA [Concomitant]
     Active Substance: DALFAMPRIDINE
     Indication: MULTIPLE SCLEROSIS
     Route: 048
  12. LUTEIN [Concomitant]
     Active Substance: LUTEIN
  13. REMERON [Concomitant]
     Active Substance: MIRTAZAPINE
  14. LISINOPRIL. [Concomitant]
     Active Substance: LISINOPRIL
  15. ZANAFLEX [Concomitant]
     Active Substance: TIZANIDINE HYDROCHLORIDE
  16. NEURONTIN [Concomitant]
     Active Substance: GABAPENTIN
  17. FISH OIL [Concomitant]
     Active Substance: FISH OIL
  18. ONDANSETRON [Concomitant]
     Active Substance: ONDANSETRON
  19. OXYCONTIN [Concomitant]
     Active Substance: OXYCODONE HYDROCHLORIDE

REACTIONS (1)
  - Back disorder [Unknown]
